FAERS Safety Report 25818029 (Version 1)
Quarter: 2025Q3

REPORT INFORMATION
  Report Type: Spontaneous
  Country: US (occurrence: None)
  Receive Date: 20250917
  Receipt Date: 20250917
  Transmission Date: 20251021
  Serious: Yes (Death)
  Sender: FDA-CTU
  Company Number: None

PATIENT
  Age: 78 Year
  Sex: Female

DRUGS (10)
  1. TEMOZOLOMIDE [Suspect]
     Active Substance: TEMOZOLOMIDE
     Indication: Brain neoplasm malignant
     Route: 048
     Dates: start: 20250521, end: 20250904
  2. LEVETIRACETAM [Concomitant]
     Active Substance: LEVETIRACETAM
  3. HYDROCHLOROTHIAZIDE\LISINOPRIL [Concomitant]
     Active Substance: HYDROCHLOROTHIAZIDE\LISINOPRIL
  4. ONDANSETRON [Concomitant]
     Active Substance: ONDANSETRON
  5. oxycodone/apa [Concomitant]
  6. PROCHLORPERAZINE [Concomitant]
     Active Substance: PROCHLORPERAZINE
  7. SITAGLIPTIN [Concomitant]
     Active Substance: SITAGLIPTIN
  8. BACTRIM [Concomitant]
     Active Substance: SULFAMETHOXAZOLE\TRIMETHOPRIM
  9. DEXAMETHASONE [Concomitant]
     Active Substance: DEXAMETHASONE
  10. ASPIRIN [Concomitant]
     Active Substance: ASPIRIN

REACTIONS (1)
  - Death [None]

NARRATIVE: CASE EVENT DATE: 20250913
